FAERS Safety Report 4694146-0 (Version None)
Quarter: 2005Q2

REPORT INFORMATION
  Report Type: 
  Country: None (occurrence: None)
  Receive Date: 20050616
  Receipt Date: 20050616
  Transmission Date: 20051028
  Serious: Yes (Death)
  Sender: FDA-Public Use
  Company Number: None

PATIENT
  Sex: Male

DRUGS (3)
  1. CHLOR-TRIMETON [Suspect]
     Dosage: ORAL
     Route: 048
  2. PERCOCET [Concomitant]
  3. AMPHETAMINE [Concomitant]

REACTIONS (1)
  - DEATH [None]
